FAERS Safety Report 9250494 (Version 1)
Quarter: 2013Q1

REPORT INFORMATION
  Report Type: Spontaneous
  Country: US (occurrence: None)
  Receive Date: 20130305
  Receipt Date: 20130305
  Transmission Date: 20140127
  Serious: Yes (Hospitalization)
  Sender: FDA-Public Use
  Company Number: 163-21880-12050127

PATIENT
  Age: 71 Year
  Sex: Male
  Weight: 58.51 kg

DRUGS (29)
  1. REVLIMID [Suspect]
     Indication: PLASMA CELL MYELOMA
     Dosage: 25MG, DAILY X 21 DAYS, PO
     Route: 048
     Dates: start: 20120105
  2. CENTRUM (CENTRUM) [Concomitant]
  3. VIACTIV (CALCIUM) [Concomitant]
  4. LEVAQUIN (LEVOFLOXACIN) [Concomitant]
  5. DIFLUCAN (FLUCONAZOLE) [Concomitant]
  6. REMERON (MIRTAZAPINE) [Concomitant]
  7. AMLODIPINE (AMLODIPINE) [Concomitant]
  8. PREDNISONE (PREDNISONE) [Concomitant]
  9. LIPITOR (ATORVASTATIN) [Concomitant]
  10. NEURONTIN (GABAPENTIN) [Concomitant]
  11. LIDOCAINE (LIDOCAINE) [Concomitant]
  12. ZOMETA (ZOLEDRONIC ACID) [Concomitant]
  13. NASONEX (MOMETASONE FUROATE) [Concomitant]
  14. AVELOX (MOXIFLOXACIN HYDROCHLORIDE) [Concomitant]
  15. LANTUS (INSULIN GLARGINE) [Concomitant]
  16. ATIVAN (LORAZEPAM) [Concomitant]
  17. METFORMIN (METFORMIN) [Concomitant]
  18. LISINOPRIL (LISINOPRIL) [Concomitant]
  19. OMEPRAZOLE (OMEPRAZOLE) [Concomitant]
  20. ALBUTEROL (SALBUTAMOL) [Concomitant]
  21. ZOFRAN (ONDANSETRON HYDROCHLORIDE) [Concomitant]
  22. ADVAIR (SERETIDE MITE) [Concomitant]
  23. CELEXA (CITALOPRAM HYDROBROMIDE) [Concomitant]
  24. ARICEPT (DONEPEZIL HYDROCHLORIDE) [Concomitant]
  25. MAG OXIDE [Concomitant]
  26. PERCOCET (OXYCOCET) [Concomitant]
  27. CARAFATE (SUCRALFATE) [Concomitant]
  28. VITAMIN C [Concomitant]
  29. VITAMIN D (ERGOCALCIFEROL) [Concomitant]

REACTIONS (2)
  - Chronic obstructive pulmonary disease [None]
  - Pneumonia [None]
